FAERS Safety Report 6889327-1 (Version None)
Quarter: 2010Q3

REPORT INFORMATION
  Report Type: 
  Country: None (occurrence: None)
  Receive Date: 20100730
  Receipt Date: 20080204
  Transmission Date: 20110219
  Serious: No
  Sender: FDA-Public Use
  Company Number: US-PFIZER INC-2007104075

PATIENT
  Sex: Male
  Weight: 81.8 kg

DRUGS (7)
  1. LIPITOR [Suspect]
     Indication: BLOOD CHOLESTEROL
     Dates: start: 20071112
  2. LIPITOR [Suspect]
     Indication: HYPERLIPIDAEMIA
  3. SYNTHROID [Concomitant]
  4. TOPROL-XL [Concomitant]
  5. AMLODIPINE [Concomitant]
     Dates: start: 20071101
  6. ACETYLSALICYLIC ACID SRT [Concomitant]
     Dates: start: 20071101
  7. ZETIA [Concomitant]

REACTIONS (1)
  - ABDOMINAL PAIN UPPER [None]
